FAERS Safety Report 7398838-4 (Version None)
Quarter: 2011Q2

REPORT INFORMATION
  Report Type: 
  Country: None (occurrence: None)
  Receive Date: 20110404
  Receipt Date: 20110404
  Transmission Date: 20111010
  Serious: Yes (Other)
  Sender: FDA-Public Use
  Company Number: None

PATIENT
  Sex: Female
  Weight: 68.9467 kg

DRUGS (1)
  1. FEXOFENADINE HCL [Suspect]
     Indication: RASH
     Dosage: 180 MG. 1 DAILY PO
     Route: 048
     Dates: start: 20110326, end: 20110326

REACTIONS (2)
  - URTICARIA [None]
  - PRURITUS [None]
